FAERS Safety Report 6066153-7 (Version None)
Quarter: 2009Q1

REPORT INFORMATION
  Report Type: 
  Country: None (occurrence: None)
  Receive Date: 20090130
  Receipt Date: 20090129
  Transmission Date: 20090719
  Serious: Yes (Other)
  Sender: FDA-Public Use
  Company Number: SP02239

PATIENT
  Age: 12 Year
  Sex: Female

DRUGS (8)
  1. MESALAMINE [Suspect]
     Indication: COLITIS ULCERATIVE
     Dosage: 2000 MG (2 X 750 MG AND 1 X 500 MG (3 IN 1 D), ORAL
     Route: 048
     Dates: start: 20071205, end: 20071221
  2. METRONIDAZOLE [Concomitant]
  3. RULOFER (SYRUP) [Concomitant]
  4. NUROFEN (SYRUP) [Concomitant]
  5. ACETAMINOPHEN [Concomitant]
  6. SOLU-DECORTIN [Concomitant]
  7. CLINOLEIC 20% [Concomitant]
  8. SPICEF [Concomitant]

REACTIONS (2)
  - LEFT VENTRICULAR DYSFUNCTION [None]
  - MYOCARDITIS [None]
